FAERS Safety Report 13638862 (Version 1)
Quarter: 2017Q2

REPORT INFORMATION
  Report Type: Report from Study
  Country: CA (occurrence: CA)
  Receive Date: 20170609
  Receipt Date: 20170609
  Transmission Date: 20170830
  Serious: Yes (Other)
  Sender: FDA-Public Use
  Company Number: CA-JNJFOC-20170604497

PATIENT
  Age: 50 Year
  Sex: Female

DRUGS (1)
  1. STELARA [Suspect]
     Active Substance: USTEKINUMAB
     Indication: PSORIASIS
     Dosage: 90 MG AT WEEK 0, 4, 16, 28
     Route: 058
     Dates: start: 20170505

REACTIONS (7)
  - Body temperature decreased [Unknown]
  - Pallor [Unknown]
  - Drug intolerance [Unknown]
  - Blood pressure increased [Recovered/Resolved]
  - Paraesthesia [Unknown]
  - Presyncope [Unknown]
  - Insomnia [Unknown]

NARRATIVE: CASE EVENT DATE: 20170604
